FAERS Safety Report 9630500 (Version 3)
Quarter: 2014Q1

REPORT INFORMATION
  Report Type: Spontaneous
  Country: US (occurrence: US)
  Receive Date: 20131018
  Receipt Date: 20140112
  Transmission Date: 20141002
  Serious: No
  Sender: FDA-Public Use
  Company Number: US-009507513-1310USA005466

PATIENT
  Age: 19 Year
  Sex: Female
  Weight: 74.83 kg

DRUGS (2)
  1. NEXPLANON [Suspect]
     Indication: CONTRACEPTION
     Dosage: 1 ROD / THREE YEARS/68MG, 3YEAR
     Route: 058
     Dates: start: 20130521, end: 20131015
  2. NEXPLANON [Suspect]
     Dosage: UNK
     Route: 059
     Dates: start: 20131015

REACTIONS (2)
  - Device breakage [Recovered/Resolved]
  - Pain in extremity [Recovered/Resolved]
